FAERS Safety Report 13034308 (Version 2)
Quarter: 2017Q1

REPORT INFORMATION
  Report Type: Spontaneous
  Country: US (occurrence: US)
  Receive Date: 20161216
  Receipt Date: 20170313
  Transmission Date: 20170428
  Serious: No
  Sender: FDA-Public Use
  Company Number: US-JNJFOC-20161129751

PATIENT
  Age: 72 Year
  Sex: Female
  Weight: 63.5 kg

DRUGS (2)
  1. WOMENS ROGAINE [Suspect]
     Active Substance: MINOXIDIL
     Route: 061
  2. WOMENS ROGAINE [Suspect]
     Active Substance: MINOXIDIL
     Indication: ALOPECIA
     Dosage: ONE DROPPERFUL
     Route: 061
     Dates: start: 20161113, end: 20161115

REACTIONS (8)
  - Product use issue [Recovered/Resolved]
  - Burning sensation [Recovered/Resolved]
  - Drug hypersensitivity [Recovered/Resolved]
  - Drug administration error [Recovered/Resolved]
  - Eye swelling [Recovered/Resolved]
  - Blister [Recovered/Resolved]
  - Swelling face [Recovered/Resolved]
  - Pruritus [Recovered/Resolved]

NARRATIVE: CASE EVENT DATE: 20161113
